FAERS Safety Report 5625872-4 (Version None)
Quarter: 2008Q1

REPORT INFORMATION
  Report Type: 
  Country: None (occurrence: None)
  Receive Date: 20080214
  Receipt Date: 20080214
  Transmission Date: 20080703
  Serious: Yes (Hospitalization)
  Sender: FDA-Public Use
  Company Number: None

PATIENT
  Age: 74 Year
  Sex: Male
  Weight: 91.1 kg

DRUGS (1)
  1. HEPARIN IN DEXTROSE [Suspect]
     Indication: DEEP VEIN THROMBOSIS
     Dosage: 1000UNITS PER HOUR IV
     Route: 042
     Dates: start: 20070925, end: 20070926

REACTIONS (1)
  - THROMBOCYTOPENIA [None]
